FAERS Safety Report 9693828 (Version 1)
Quarter: 2013Q4

REPORT INFORMATION
  Report Type: Spontaneous
  Country: US (occurrence: US)
  Receive Date: 20131118
  Receipt Date: 20131118
  Transmission Date: 20140711
  Serious: Yes (Other)
  Sender: FDA-Public Use
  Company Number: PHEH2013US023895

PATIENT
  Sex: Female

DRUGS (8)
  1. TEGRETOL-XR [Suspect]
     Dosage: 400 MG, QD (2T QD)
  2. CARBAMAZEPINE [Suspect]
     Dosage: UNK UKN, UNK
  3. MINOCYCLINE [Concomitant]
     Dosage: 100 NG, QD
  4. LANTUS [Concomitant]
     Dosage: 19 U, BID
  5. HUMALOG [Concomitant]
  6. MULTI VITAMIN + MINERAL [Concomitant]
     Dosage: UNK UKN, QD
  7. PEPCID [Concomitant]
     Dosage: UNK UKN, PRN
  8. ATORVASTATIN [Concomitant]
     Dosage: 10 MG, QD

REACTIONS (4)
  - Vertigo [Unknown]
  - Headache [Unknown]
  - Dizziness [Unknown]
  - Convulsion [Unknown]
